FAERS Safety Report 4889675-0 (Version None)
Quarter: 2006Q1

REPORT INFORMATION
  Report Type: 
  Country: None (occurrence: None)
  Receive Date: 20060120
  Receipt Date: 20060116
  Transmission Date: 20060701
  Serious: Yes (Hospitalization)
  Sender: FDA-Public Use
  Company Number: A001-320-877

PATIENT
  Age: 74 Year
  Sex: Male
  Weight: 62 kg

DRUGS (5)
  1. DONEPEZIL HCL [Suspect]
     Indication: VASCULAR DEMENTIA
     Dosage: SEE IMAGE
     Route: 048
     Dates: start: 20050825, end: 20051021
  2. DONEPEZIL HCL [Suspect]
     Indication: VASCULAR DEMENTIA
     Dosage: SEE IMAGE
     Route: 048
     Dates: start: 20051022, end: 20060108
  3. DONEPEZIL HCL [Suspect]
     Indication: VASCULAR DEMENTIA
     Dosage: DOUBLEBLIND, 1 IN 1 D, ORAL
     Route: 048
     Dates: start: 20050216, end: 20050801
  4. ASPIRIN [Concomitant]
  5. NEUROBION FORTE      (VITAMEDIN INTRAVENOUS) [Concomitant]

REACTIONS (3)
  - CONDITION AGGRAVATED [None]
  - MEMORY IMPAIRMENT [None]
  - NECROTISING FASCIITIS [None]
